FAERS Safety Report 23853251 (Version 2)
Quarter: 2024Q2

REPORT INFORMATION
  Report Type: Spontaneous
  Country: JP (occurrence: JP)
  Receive Date: 20240514
  Receipt Date: 20240521
  Transmission Date: 20240716
  Serious: No
  Sender: FDA-Public Use
  Company Number: JP-MLMSERVICE-20240502-PI046903-00082-1

PATIENT
  Age: 49 Year
  Sex: Male

DRUGS (2)
  1. PACLITAXEL [Suspect]
     Active Substance: PACLITAXEL
     Indication: Tracheal cancer
     Dosage: 40 MG/M2 ON DAYS 1, 8, 15, 22, 29, AND 36
  2. CARBOPLATIN [Suspect]
     Active Substance: CARBOPLATIN
     Indication: Tracheal cancer
     Dosage: TOTAL OF SIX WEEKLY-COURSES OF CARBOPLATIN (AREA UNDER THE CURVE 2)

REACTIONS (1)
  - Off label use [Unknown]
